FAERS Safety Report 6689980-1 (Version None)
Quarter: 2010Q2

REPORT INFORMATION
  Report Type: 
  Country: None (occurrence: None)
  Receive Date: 20100421
  Receipt Date: 20100413
  Transmission Date: 20101027
  Serious: Yes (Other)
  Sender: FDA-Public Use
  Company Number: US-PFIZER INC-2010000313

PATIENT
  Sex: Male
  Weight: 85.7 kg

DRUGS (5)
  1. TOVIAZ [Suspect]
     Indication: HYPERTONIC BLADDER
     Dosage: 4 MG, 1X/DAY
     Route: 048
     Dates: start: 20091118, end: 20100101
  2. WARFARIN SODIUM [Suspect]
     Dosage: UNK
  3. LIPITOR [Concomitant]
     Indication: BLOOD CHOLESTEROL INCREASED
     Dosage: UNK
  4. HYZAAR [Concomitant]
     Indication: HYPERTENSION
     Dosage: UNK
  5. TEGRETOL [Concomitant]
     Dosage: 200 MG, UNK

REACTIONS (6)
  - ABNORMAL DREAMS [None]
  - DRY THROAT [None]
  - FATIGUE [None]
  - INTERNATIONAL NORMALISED RATIO INCREASED [None]
  - LETHARGY [None]
  - SOMNOLENCE [None]
